FAERS Safety Report 7897980-9 (Version None)
Quarter: 2011Q4

REPORT INFORMATION
  Report Type: 
  Country: None (occurrence: None)
  Receive Date: 20111107
  Receipt Date: 20111107
  Transmission Date: 20120403
  Serious: Yes (Life-Threatening, Hospitalization)
  Sender: FDA-Public Use
  Company Number: None

PATIENT
  Age: 77 Year
  Sex: Female
  Weight: 97.5 kg

DRUGS (2)
  1. METHOTREXATE [Concomitant]
  2. CIMZIA [Suspect]
     Dosage: 400

REACTIONS (3)
  - RASH ERYTHEMATOUS [None]
  - SUBCORNEAL PUSTULAR DERMATOSIS [None]
  - DERMATOSIS [None]
